FAERS Safety Report 4885851-1 (Version None)
Quarter: 2006Q1

REPORT INFORMATION
  Report Type: 
  Country: None (occurrence: None)
  Receive Date: 20060120
  Receipt Date: 20060118
  Transmission Date: 20060701
  Serious: Yes (Other)
  Sender: FDA-Public Use
  Company Number: DE-JNJFOC-20060103600

PATIENT
  Sex: Female

DRUGS (9)
  1. TOPAMAX [Suspect]
     Indication: TREMOR
     Route: 048
  2. OMEPRAZOLE [Concomitant]
  3. PROPRANOLOL [Concomitant]
  4. ZOFENOPRIL [Concomitant]
  5. INDOMETHACIN [Concomitant]
  6. SOLVEX [Concomitant]
  7. SOLVEX [Concomitant]
  8. SOLVEX [Concomitant]
  9. SOLVEX [Concomitant]
     Dosage: SLOWLY BEING REDUCED

REACTIONS (2)
  - ERYTHEMA [None]
  - SKIN NECROSIS [None]
